FAERS Safety Report 10086187 (Version 2)
Quarter: 2014Q4

REPORT INFORMATION
  Report Type: Report from Study
  Country: DE (occurrence: DE)
  Receive Date: 20140418
  Receipt Date: 20141121
  Transmission Date: 20150528
  Serious: Yes (Hospitalization, Disabling)
  Sender: FDA-Public Use
  Company Number: DE-ABBVIE-14P-062-1226011-00

PATIENT
  Age: 48 Year
  Sex: Female

DRUGS (1)
  1. HUMIRA [Suspect]
     Active Substance: ADALIMUMAB
     Indication: RHEUMATOID ARTHRITIS
     Route: 058
     Dates: start: 20120320

REACTIONS (5)
  - Hemiplegia [Recovered/Resolved]
  - Speech disorder [Not Recovered/Not Resolved]
  - Hypertension [Unknown]
  - Cerebral haemorrhage [Recovered/Resolved]
  - Rehabilitation therapy [Not Recovered/Not Resolved]

NARRATIVE: CASE EVENT DATE: 2014
